FAERS Safety Report 17916011 (Version 1)
Quarter: 2020Q2

REPORT INFORMATION
  Report Type: Spontaneous
  Country: US (occurrence: US)
  Receive Date: 20200618
  Receipt Date: 20200618
  Transmission Date: 20200714
  Serious: Yes (Hospitalization)
  Sender: FDA-Public Use
  Company Number: None

PATIENT
  Age: 64 Year
  Sex: Female
  Weight: 73.8 kg

DRUGS (16)
  1. CARBIDOPA/LEVODOPA [Concomitant]
     Active Substance: CARBIDOPA\LEVODOPA
  2. CBD OIL [Concomitant]
     Active Substance: CANNABIDIOL\HERBALS
  3. TRAZODONE [Concomitant]
     Active Substance: TRAZODONE HYDROCHLORIDE
  4. FISH OIL [Concomitant]
     Active Substance: FISH OIL
  5. GARLIC. [Concomitant]
     Active Substance: GARLIC
  6. PRAMIPEXOLE. [Concomitant]
     Active Substance: PRAMIPEXOLE
  7. CRANBARRIER [Concomitant]
  8. REPLENIX ADVANCE TYPE II COLLAGEN [Concomitant]
  9. MULTIVITAMIN [Concomitant]
     Active Substance: VITAMINS
  10. CARBIDOPA/LEVODOPA 25/100 [Suspect]
     Active Substance: CARBIDOPA\LEVODOPA
     Indication: PARKINSON^S DISEASE
     Dosage: ?          QUANTITY:1 CAPSULE(S);?
     Route: 048
     Dates: start: 20191025
  11. AZILECT [Concomitant]
     Active Substance: RASAGILINE MESYLATE
  12. AZO BLADDER CONTROL [Concomitant]
  13. HAIR, SKIN AND NAILS [Concomitant]
  14. ESTRADIOL. [Concomitant]
     Active Substance: ESTRADIOL
  15. CARBIDOPA/LEVODOPA ER [Concomitant]
     Active Substance: CARBIDOPA\LEVODOPA
  16. MAGNESIUM [Concomitant]
     Active Substance: MAGNESIUM

REACTIONS (2)
  - Hair growth abnormal [None]
  - Hair texture abnormal [None]
